FAERS Safety Report 5244335-1 (Version None)
Quarter: 2007Q1

REPORT INFORMATION
  Report Type: 
  Country: None (occurrence: None)
  Receive Date: 20070222
  Receipt Date: 20070214
  Transmission Date: 20070707
  Serious: Yes (Death)
  Sender: FDA-Public Use
  Company Number: GB-PURDUE-GBR_2007_0002790

PATIENT
  Age: 71 Year
  Sex: Male

DRUGS (1)
  1. MST CONTINUS TABLETS [Suspect]
     Indication: CANCER PAIN
     Dosage: 200 MG, SINGLE
     Route: 048

REACTIONS (2)
  - ACCIDENTAL OVERDOSE [None]
  - DRUG DISPENSING ERROR [None]
